FAERS Safety Report 19748757 (Version 1)
Quarter: 2021Q3

REPORT INFORMATION
  Report Type: Spontaneous
  Country: US (occurrence: US)
  Receive Date: 20210826
  Receipt Date: 20210826
  Transmission Date: 20211014
  Serious: Yes (Hospitalization, Other)
  Sender: FDA-Public Use
  Company Number: US-HIKMA PHARMACEUTICALS USA INC.-US-H14001-21-03771

PATIENT
  Age: 36 Year
  Sex: Female

DRUGS (2)
  1. IFOSFAMIDE. [Suspect]
     Active Substance: IFOSFAMIDE
     Indication: MALIGNANT MESENCHYMOMA RECURRENT
     Dosage: SIX CYCLE; CUMULATIVE IFOSFAMIDE DOSE OF 50 G/M2
     Route: 065
  2. DOXORUBICIN [Suspect]
     Active Substance: DOXORUBICIN
     Indication: MALIGNANT MESENCHYMOMA RECURRENT
     Dosage: SIX CYCLE
     Route: 065

REACTIONS (7)
  - Pancytopenia [Unknown]
  - Congestive cardiomyopathy [Unknown]
  - Febrile neutropenia [Unknown]
  - Metabolic acidosis [Unknown]
  - Nephropathy toxic [Unknown]
  - Acute kidney injury [Unknown]
  - Fanconi syndrome [Unknown]
